FAERS Safety Report 6986906-8 (Version None)
Quarter: 2010Q3

REPORT INFORMATION
  Report Type: 
  Country: None (occurrence: None)
  Receive Date: 20100915
  Receipt Date: 20090813
  Transmission Date: 20110219
  Serious: No
  Sender: FDA-Public Use
  Company Number: US-WYE-H10582009

PATIENT
  Sex: Female

DRUGS (3)
  1. PRISTIQ [Suspect]
     Indication: DEPRESSION
     Route: 048
     Dates: start: 20090726
  2. ADDERALL 10 [Concomitant]
     Dosage: DOSE UNKNOWN, DAILY
     Route: 048
  3. KLONOPIN [Concomitant]
     Dosage: DOSE UNKNOWN, DAILY
     Route: 048

REACTIONS (1)
  - MEDICATION RESIDUE [None]
